FAERS Safety Report 5718771-0 (Version None)
Quarter: 2008Q2

REPORT INFORMATION
  Report Type: 
  Country: None (occurrence: None)
  Receive Date: 20080425
  Receipt Date: 20080417
  Transmission Date: 20081010
  Serious: Yes (Other)
  Sender: FDA-Public Use
  Company Number: PHHY2008GR06142

PATIENT
  Age: 43 Year
  Sex: Female

DRUGS (1)
  1. EXJADE [Suspect]

REACTIONS (3)
  - LEUKOPENIA [None]
  - NEUTROPENIA [None]
  - PARVOVIRUS INFECTION [None]
